FAERS Safety Report 5469343-7 (Version None)
Quarter: 2007Q3

REPORT INFORMATION
  Report Type: 
  Country: None (occurrence: None)
  Receive Date: 20070926
  Receipt Date: 20070926
  Transmission Date: 20080115
  Serious: Yes (Hospitalization)
  Sender: FDA-Public Use
  Company Number: None

PATIENT
  Age: 68 Year
  Sex: Male
  Weight: 110.2241 kg

DRUGS (2)
  1. OXALIPLATIN [Suspect]
     Indication: NEOPLASM MALIGNANT
     Dosage: 130MG/M2 - 260MG EVERY 3 WEEKS IV
     Route: 042
     Dates: start: 20070913
  2. CARBOPLATIN [Suspect]

REACTIONS (1)
  - TRACHEOSTOMY [None]
